FAERS Safety Report 22366940 (Version 7)
Quarter: 2025Q3

REPORT INFORMATION
  Report Type: Spontaneous
  Country: US (occurrence: US)
  Receive Date: 20230525
  Receipt Date: 20250926
  Transmission Date: 20251021
  Serious: Yes (Hospitalization, Other)
  Sender: PFIZER
  Company Number: US-PFIZER INC-PV202300092651

PATIENT
  Age: 77 Year
  Sex: Female

DRUGS (2)
  1. IBRANCE [Suspect]
     Active Substance: PALBOCICLIB
     Route: 048
  2. POTASSIUM [Concomitant]
     Active Substance: POTASSIUM

REACTIONS (6)
  - Urinary tract disorder [Unknown]
  - Neuropathy peripheral [Unknown]
  - Urinary incontinence [Unknown]
  - Arthropathy [Unknown]
  - Tooth disorder [Unknown]
  - Influenza [Unknown]
